FAERS Safety Report 18493974 (Version 1)
Quarter: 2020Q4

REPORT INFORMATION
  Report Type: Spontaneous
  Country: ES (occurrence: ES)
  Receive Date: 20201111
  Receipt Date: 20201111
  Transmission Date: 20210114
  Serious: Yes (Other)
  Sender: FDA-Public Use
  Company Number: ES-AUROBINDO-AUR-APL-2020-055907

PATIENT
  Age: 65 Year
  Sex: Female

DRUGS (6)
  1. LEVETIRACETAM. [Suspect]
     Active Substance: LEVETIRACETAM
     Dosage: 250 MILLIGRAM, ONCE A DAY
     Route: 065
  2. LEVETIRACETAM. [Suspect]
     Active Substance: LEVETIRACETAM
     Indication: PRODUCT USED FOR UNKNOWN INDICATION
     Dosage: 1000 MILLIGRAM, TWO TIMES A DAY
     Route: 065
  3. DEPAKINE [Concomitant]
     Active Substance: VALPROATE SODIUM
     Dosage: 500 MILLIGRAM, TWO TIMES A DAY (500 MILLIGRAM, 2X/DAY (BID))
     Route: 065
  4. DEPAKINE [Concomitant]
     Active Substance: VALPROATE SODIUM
     Indication: PRODUCT USED FOR UNKNOWN INDICATION
     Dosage: UNK UNK, ONCE A DAY (500-200-500 MG DAILY)
     Route: 065
  5. ZEBINIX [Suspect]
     Active Substance: ESLICARBAZEPINE ACETATE
     Indication: PRODUCT USED FOR UNKNOWN INDICATION
     Dosage: 800 MILLIGRAM, ONCE A DAY
     Route: 065
  6. DEPAKINE [Concomitant]
     Active Substance: VALPROATE SODIUM
     Dosage: UNK UNK, ONCE A DAY (500-200-500 MG DAILY)
     Route: 065

REACTIONS (3)
  - Hyponatraemia [Unknown]
  - Hallucination, auditory [Unknown]
  - Partial seizures with secondary generalisation [Recovered/Resolved]
